FAERS Safety Report 16011302 (Version 1)
Quarter: 2019Q1

REPORT INFORMATION
  Report Type: Spontaneous
  Country: JP (occurrence: JP)
  Receive Date: 20190227
  Receipt Date: 20190227
  Transmission Date: 20190418
  Serious: Yes (Other)
  Sender: FDA-Public Use
  Company Number: JP-ROCHE-2273053

PATIENT
  Age: 56 Year
  Sex: Female

DRUGS (15)
  1. TRESIBA [Concomitant]
     Active Substance: INSULIN DEGLUDEC
     Indication: DIABETES MELLITUS
  2. L-CARBOCISTEINE [Concomitant]
     Active Substance: CARBOCYSTEINE
     Route: 065
     Dates: start: 20190107, end: 20190110
  3. NOVORAPID [Concomitant]
     Active Substance: INSULIN ASPART
  4. EQUMET [Concomitant]
     Active Substance: METFORMIN HYDROCHLORIDE\VILDAGLIPTIN
     Indication: DIABETES MELLITUS
     Route: 048
  5. GENINAX [Suspect]
     Active Substance: GARENOXACIN MESYLATE
     Indication: NASOPHARYNGITIS
     Route: 048
     Dates: start: 20190107, end: 20190110
  6. CRESTOR [Concomitant]
     Active Substance: ROSUVASTATIN CALCIUM
  7. IBUPROFEN. [Concomitant]
     Active Substance: IBUPROFEN
     Route: 065
     Dates: start: 20190107, end: 20190110
  8. REBAMIPIDE [Concomitant]
     Active Substance: REBAMIPIDE
     Route: 065
     Dates: start: 20190107, end: 20190110
  9. XOFLUZA [Suspect]
     Active Substance: BALOXAVIR MARBOXIL
     Indication: INFLUENZA
     Route: 048
     Dates: start: 20190108, end: 20190108
  10. LAC-B [Concomitant]
     Active Substance: BIFIDOBACTERIUM SPP.
     Route: 065
     Dates: start: 20190107, end: 20190110
  11. DEXTROMETHORPHAN HYDROBROMIDE. [Concomitant]
     Active Substance: DEXTROMETHORPHAN HYDROBROMIDE
     Route: 065
     Dates: start: 20190107, end: 20190110
  12. MAGNESIUM OXIDE. [Concomitant]
     Active Substance: MAGNESIUM OXIDE
  13. GENINAX [Suspect]
     Active Substance: GARENOXACIN MESYLATE
     Indication: INFLUENZA
  14. JARDIANCE [Concomitant]
     Active Substance: EMPAGLIFLOZIN
  15. METGLUCO [Concomitant]
     Active Substance: METFORMIN HYDROCHLORIDE
     Indication: DIABETES MELLITUS
     Route: 048

REACTIONS (1)
  - Hepatic function abnormal [Recovered/Resolved]

NARRATIVE: CASE EVENT DATE: 20190108
